FAERS Safety Report 25580065 (Version 1)
Quarter: 2025Q3

REPORT INFORMATION
  Report Type: Spontaneous
  Country: US (occurrence: US)
  Receive Date: 20250718
  Receipt Date: 20250718
  Transmission Date: 20251020
  Serious: No
  Sender: NOVO NORDISK
  Company Number: US-NOVOPROD-1440407

PATIENT
  Sex: Male

DRUGS (1)
  1. WEGOVY [Suspect]
     Active Substance: SEMAGLUTIDE
     Indication: Product used for unknown indication
     Dosage: 2.4 MG, QW

REACTIONS (5)
  - Tremor [Unknown]
  - Fall [Unknown]
  - Anxiety [Unknown]
  - Dizziness [Unknown]
  - Dizziness [Unknown]

NARRATIVE: CASE EVENT DATE: 20250411
